FAERS Safety Report 4487386-7 (Version None)
Quarter: 2004Q4

REPORT INFORMATION
  Report Type: 
  Country: None (occurrence: None)
  Receive Date: 20041027
  Receipt Date: 20030605
  Transmission Date: 20050328
  Serious: Yes (Hospitalization, Other)
  Sender: FDA-Public Use
  Company Number: US-MERCK-0306USA00745

PATIENT
  Age: 73 Year
  Sex: Male
  Weight: 94 kg

DRUGS (16)
  1. VIOXX [Suspect]
     Indication: LOCALISED OSTEOARTHRITIS
     Route: 048
     Dates: start: 20000101, end: 20000101
  2. VIOXX [Suspect]
     Route: 048
     Dates: start: 20000101, end: 20010216
  3. CARDIZEM [Concomitant]
     Route: 065
  4. ZYLOPRIM [Concomitant]
     Route: 065
  5. ALTACE [Concomitant]
     Route: 065
  6. PRAVACHOL [Concomitant]
     Route: 065
  7. ASPIRIN [Concomitant]
     Route: 065
     Dates: end: 20010216
  8. GLUCOPHAGE [Concomitant]
     Route: 065
  9. VITAMIN E [Concomitant]
     Route: 065
  10. ASCORBIC ACID [Concomitant]
     Route: 065
  11. OMEGA-3 [Concomitant]
     Route: 065
  12. CENTRUM [Concomitant]
     Route: 065
  13. VITAMIN B COMPLEX [Concomitant]
     Route: 065
  14. AVANDIA [Concomitant]
     Route: 065
  15. VIAGRA [Concomitant]
     Route: 065
     Dates: start: 20000901, end: 20010119
  16. IMDUR [Concomitant]
     Route: 065
     Dates: start: 20010119

REACTIONS (19)
  - ADVERSE EVENT [None]
  - ANGINA PECTORIS [None]
  - CARDIAC DISORDER [None]
  - CAROTID ARTERY OCCLUSION [None]
  - CHEST PAIN [None]
  - CONVULSION [None]
  - CORONARY ARTERY DISEASE [None]
  - DIABETES MELLITUS [None]
  - DYSPNOEA [None]
  - GASTRIC ULCER [None]
  - GASTROINTESTINAL HAEMORRHAGE [None]
  - GLYCOSYLATED HAEMOGLOBIN INCREASED [None]
  - HAEMORRHAGE [None]
  - HERPES ZOSTER [None]
  - HYPERTENSION [None]
  - MELAENA [None]
  - MONARTHRITIS [None]
  - MYOCARDIAL INFARCTION [None]
  - TACHYCARDIA [None]
